FAERS Safety Report 21933503 (Version 1)
Quarter: 2023Q1

REPORT INFORMATION
  Report Type: Spontaneous
  Country: IN (occurrence: IN)
  Receive Date: 20230201
  Receipt Date: 20230201
  Transmission Date: 20230417
  Serious: Yes (Other)
  Sender: FDA-Public Use
  Company Number: IN-SLATE RUN PHARMACEUTICALS-23IN001486

PATIENT

DRUGS (3)
  1. VANCOMYCIN HYDROCHLORIDE [Suspect]
     Active Substance: VANCOMYCIN HYDROCHLORIDE
     Indication: Evidence based treatment
     Dosage: UNK
  2. AMIKACIN [Suspect]
     Active Substance: AMIKACIN
     Indication: Evidence based treatment
     Dosage: UNK
  3. OTHER BLOOD GLUCOSE LOWERING DRUGS, EXCL. INSULINS [Concomitant]
     Indication: Diabetes mellitus
     Route: 048

REACTIONS (2)
  - Pyrexia [Recovered/Resolved]
  - Therapy non-responder [Recovered/Resolved]
